FAERS Safety Report 4833433-X (Version None)
Quarter: 2005Q4

REPORT INFORMATION
  Report Type: 
  Country: None (occurrence: None)
  Receive Date: 20051118
  Receipt Date: 20051107
  Transmission Date: 20060501
  Serious: Yes (Hospitalization, Other)
  Sender: FDA-Public Use
  Company Number: US_0511123746

PATIENT
  Age: 49 Year
  Sex: Female

DRUGS (2)
  1. HUMULIN R [Suspect]
  2. HUMULIN 70/30 [Suspect]

REACTIONS (3)
  - NEOPLASM MALIGNANT [None]
  - POST PROCEDURAL COMPLICATION [None]
  - UNEVALUABLE EVENT [None]
